FAERS Safety Report 9701761 (Version 2)
Quarter: 2013Q4

REPORT INFORMATION
  Report Type: Spontaneous
  Country: FR (occurrence: FR)
  Receive Date: 20131121
  Receipt Date: 20131220
  Transmission Date: 20140711
  Serious: Yes (Hospitalization)
  Sender: FDA-Public Use
  Company Number: FR-PFIZER INC-2013326057

PATIENT
  Age: 82 Year
  Sex: Male

DRUGS (5)
  1. DALACINE [Suspect]
     Indication: STREPTOCOCCAL INFECTION
     Dosage: 300 MG, 3X/DAY
     Route: 048
     Dates: start: 20130902, end: 20130927
  2. AMOXICILLIN [Concomitant]
     Indication: ANTIBIOTIC THERAPY
     Dosage: 3 G, DAILY
     Route: 042
     Dates: start: 20130830, end: 20130926
  3. AMOXICILLIN [Concomitant]
     Indication: STREPTOCOCCAL INFECTION
  4. AMOXICILLIN [Concomitant]
     Indication: STREPTOCOCCAL INFECTION
     Dosage: 3 G, DAILY
     Route: 048
     Dates: start: 20130926, end: 20131010
  5. VANCOMYCIN [Concomitant]
     Indication: ANTIBIOTIC THERAPY
     Dosage: UNK
     Dates: start: 20130830, end: 20130902

REACTIONS (2)
  - Generalised erythema [Recovered/Resolved]
  - Pruritus [Recovered/Resolved]
